FAERS Safety Report 9525020 (Version 2)
Quarter: 2013Q4

REPORT INFORMATION
  Report Type: Spontaneous
  Country: NL (occurrence: NL)
  Receive Date: 20130916
  Receipt Date: 20131017
  Transmission Date: 20140711
  Serious: Yes (Hospitalization, Disabling)
  Sender: FDA-Public Use
  Company Number: NL-IPSEN BIOPHARMACEUTICALS, INC.-2013-3983

PATIENT
  Age: 67 Year
  Sex: Male

DRUGS (5)
  1. DYSPORT [Suspect]
     Indication: SALIVARY GLAND DISORDER
     Dosage: 140 UNITS
     Route: 065
     Dates: start: 20130823, end: 20130823
  2. DYSPORT [Suspect]
     Indication: OFF LABEL USE
  3. MADOPAR [Concomitant]
     Indication: PRODUCT USED FOR UNKNOWN INDICATION
     Route: 065
  4. SINAREST [Concomitant]
     Indication: PRODUCT USED FOR UNKNOWN INDICATION
     Dosage: 200/50MG
     Route: 065
  5. REQUIP [Concomitant]
     Indication: PRODUCT USED FOR UNKNOWN INDICATION
     Route: 065

REACTIONS (2)
  - Respiratory distress [Recovering/Resolving]
  - Dysphagia [Recovering/Resolving]
